FAERS Safety Report 10206513 (Version 2)
Quarter: 2014Q3

REPORT INFORMATION
  Report Type: Spontaneous
  Country: US (occurrence: US)
  Receive Date: 20140530
  Receipt Date: 20140729
  Transmission Date: 20150326
  Serious: No
  Sender: FDA-Public Use
  Company Number: US-JNJFOC-20140516286

PATIENT
  Age: 86 Year
  Sex: Female
  Weight: 89.81 kg

DRUGS (21)
  1. ZYRTEC [Concomitant]
     Active Substance: CETIRIZINE HYDROCHLORIDE
     Route: 048
  2. FLUTICASONE/ SALMETEROL [Concomitant]
     Dosage: 250MCG-50MCG, 2 TIMES EVERY DAY MORNING AND EVENING APPROXIMATELY 12 HOURS APART
     Route: 055
  3. ASPIRIN. [Concomitant]
     Active Substance: ASPIRIN
     Dosage: EVERY DAY
     Route: 048
  4. UBIDECARENONE [Concomitant]
     Active Substance: UBIDECARENONE
     Route: 048
  5. METOPROLOL TARTRATE. [Concomitant]
     Active Substance: METOPROLOL TARTRATE
     Dosage: 2 TABLETS ORAL ROUTE 2 TIMES EVERY DAY WITH FOOD
     Route: 048
  6. XARELTO [Suspect]
     Active Substance: RIVAROXABAN
     Indication: CEREBROVASCULAR ACCIDENT PROPHYLAXIS
     Route: 048
     Dates: start: 20140402, end: 20140522
  7. XARELTO [Suspect]
     Active Substance: RIVAROXABAN
     Indication: ATRIAL FIBRILLATION
     Route: 048
     Dates: start: 20140402, end: 20140522
  8. ALBUTEROL SULFATE. [Concomitant]
     Active Substance: ALBUTEROL SULFATE
     Dosage: 2 PUFF EVERY 4-6 HOURS AS NEEDED
     Route: 055
  9. CRESTOR [Concomitant]
     Active Substance: ROSUVASTATIN CALCIUM
     Route: 048
  10. GABAPENTINE [Concomitant]
     Active Substance: GABAPENTIN
     Route: 048
  11. FUROSEMIDE. [Concomitant]
     Active Substance: FUROSEMIDE
     Dosage: 1 1/2 TABLET EVERY DAY
     Route: 048
  12. KLOR-CON [Concomitant]
     Active Substance: POTASSIUM CHLORIDE
     Dosage: 10 10 MEQ EVERY DAY WITH FOOD
     Route: 048
  13. NITROGLYCERINE [Concomitant]
     Active Substance: NITROGLYCERIN
     Dosage: SUBLINGUAL ROUTE AT FIRST SIGN OF ATTACH, MAY REPEAT EVERY 5 MINUTS UNTILL RELIEF.
     Route: 060
  14. NORVASC [Concomitant]
     Active Substance: AMLODIPINE BESYLATE
     Route: 048
  15. OMEPRAZOLE. [Concomitant]
     Active Substance: OMEPRAZOLE
     Dosage: EVERY DAY BEFORE MEAL
     Route: 048
  16. ALBUTEROL SULFATE. [Concomitant]
     Active Substance: ALBUTEROL SULFATE
     Dosage: 2 PUFF BY INHALATION ROUTE EVERY 4-6 HOURS AS NEEDED
     Route: 055
  17. MULTIVITAMINS + MINERALS PLUS LUTEIN [Concomitant]
     Dosage: EVERY DAY
     Route: 048
  18. OMEGA-3 FATTY ACIDS [Concomitant]
     Active Substance: OMEGA-3 FATTY ACIDS
     Route: 048
  19. TIOTROPIUM BROMIDE [Concomitant]
     Active Substance: TIOTROPIUM BROMIDE
     Route: 048
  20. HYDROCODONE, ACETAMINOPHEN [Concomitant]
     Active Substance: ACETAMINOPHEN\HYDROCODONE BITARTRATE
     Indication: PAIN
     Dosage: 1 TABLETNFOR EVERY 6 SIX HOURS AS NEEDED FOR PAIN
     Route: 048
  21. CLOPIDOGREL BISULPHATE [Concomitant]
     Active Substance: CLOPIDOGREL BISULFATE
     Route: 048

REACTIONS (2)
  - Incorrect dose administered [Unknown]
  - Hallucination [Recovered/Resolved]

NARRATIVE: CASE EVENT DATE: 201405
